FAERS Safety Report 5005671-7 (Version None)
Quarter: 2006Q2

REPORT INFORMATION
  Report Type: 
  Country: None (occurrence: None)
  Receive Date: 20060515
  Receipt Date: 20060428
  Transmission Date: 20061013
  Serious: Yes (Hospitalization)
  Sender: FDA-Public Use
  Company Number: 224743

PATIENT
  Age: 50 Year
  Sex: Female
  Weight: 50.0318 kg

DRUGS (2)
  1. AVASTIN [Suspect]
     Indication: COLON CANCER
     Dosage: 250 MG Q2W INTRAVENOUS
     Route: 042
     Dates: start: 20060111
  2. OXALIPLATIN (OXALIPLATIN) [Suspect]
     Indication: COLON CANCER
     Dosage: 120 MG Q2W INTRAVENOUS
     Route: 042
     Dates: start: 20060111

REACTIONS (1)
  - HEPATITIS TOXIC [None]
